FAERS Safety Report 8571121 (Version 2)
Quarter: 2013Q4

REPORT INFORMATION
  Report Type: Spontaneous
  Country: US (occurrence: US)
  Receive Date: 20120521
  Receipt Date: 20131122
  Transmission Date: 20140711
  Serious: Yes (Other)
  Sender: FDA-Public Use
  Company Number: US-US-EMD SERONO, INC.-7132741

PATIENT
  Sex: Female

DRUGS (3)
  1. REBIF [Suspect]
     Indication: MULTIPLE SCLEROSIS
     Route: 058
     Dates: start: 20041115
  2. SYNTHROID [Concomitant]
     Indication: THYROID DISORDER
  3. CRESTOR [Concomitant]
     Indication: BLOOD CHOLESTEROL INCREASED

REACTIONS (7)
  - Type 2 diabetes mellitus [Not Recovered/Not Resolved]
  - Intervertebral disc protrusion [Unknown]
  - Ovarian fibroma [Unknown]
  - Central nervous system lesion [Unknown]
  - Paraesthesia [Unknown]
  - Asthenia [Unknown]
  - Hepatic enzyme increased [Unknown]
